FAERS Safety Report 6129416-2 (Version None)
Quarter: 2009Q1

REPORT INFORMATION
  Report Type: 
  Country: None (occurrence: None)
  Receive Date: 20090324
  Receipt Date: 20090317
  Transmission Date: 20090719
  Serious: Yes (Other)
  Sender: FDA-Public Use
  Company Number: PHHY2008FR23313

PATIENT
  Sex: Female

DRUGS (9)
  1. ACLASTA [Suspect]
     Indication: OSTEOPOROSIS
     Dosage: 5 MG
     Route: 042
     Dates: start: 20080311
  2. ZOMETA [Suspect]
     Indication: OSTEOPOROSIS
     Dosage: UNK
     Dates: start: 20040101
  3. ZOMETA [Suspect]
     Indication: POLYMYALGIA RHEUMATICA
     Dosage: UNK
     Dates: start: 20050101
  4. ZOMETA [Suspect]
     Dosage: UNK
     Dates: start: 20060101
  5. ZOMETA [Suspect]
     Dosage: UNK
     Dates: start: 20070101
  6. SPIRONOLACTONE [Concomitant]
     Dosage: 75 MG
  7. ART 50 [Concomitant]
  8. AMOXICILLIN [Concomitant]
  9. HOMEOPATHY [Concomitant]

REACTIONS (14)
  - BONE FISSURE [None]
  - BONE LESION [None]
  - DENTAL IMPLANTATION [None]
  - ERYTHEMA [None]
  - HIGH FREQUENCY ABLATION [None]
  - IMPAIRED HEALING [None]
  - INFLUENZA LIKE ILLNESS [None]
  - OSTEONECROSIS [None]
  - PAIN [None]
  - PRIMARY SEQUESTRUM [None]
  - SEQUESTRECTOMY [None]
  - STOMATITIS NECROTISING [None]
  - SWELLING [None]
  - TOOTH EXTRACTION [None]
